FAERS Safety Report 6556492-5 (Version None)
Quarter: 2010Q1

REPORT INFORMATION
  Report Type: 
  Country: None (occurrence: None)
  Receive Date: 20100128
  Receipt Date: 20100114
  Transmission Date: 20100710
  Serious: Yes (Death, Other)
  Sender: FDA-Public Use
  Company Number: IN-PFIZER INC-2010005219

PATIENT
  Sex: Male

DRUGS (4)
  1. SUTENT [Suspect]
     Indication: GASTROINTESTINAL STROMAL TUMOUR
     Dosage: 50 MG, UNK
     Route: 048
  2. SUTENT [Suspect]
     Dosage: 37.5 MG, UNK
  3. LOPERAMIDE HYDROCHLORIDE [Concomitant]
     Dosage: UNK
     Route: 048
  4. ELTROXIN [Concomitant]
     Indication: BLOOD THYROID STIMULATING HORMONE
     Route: 048

REACTIONS (5)
  - CARDIOPULMONARY FAILURE [None]
  - DEATH [None]
  - HAEMORRHAGE [None]
  - PALMAR-PLANTAR ERYTHRODYSAESTHESIA SYNDROME [None]
  - WHITE BLOOD CELL COUNT DECREASED [None]
